FAERS Safety Report 10412462 (Version 4)
Quarter: 2016Q2

REPORT INFORMATION
  Report Type: Spontaneous
  Country: US (occurrence: US)
  Receive Date: 20140827
  Receipt Date: 20160622
  Transmission Date: 20160815
  Serious: Yes (Hospitalization, Other)
  Sender: FDA-Public Use
  Company Number: US-009507513-1408USA011499

PATIENT
  Sex: Female
  Weight: 74.38 kg

DRUGS (6)
  1. FOSAMAX [Suspect]
     Active Substance: ALENDRONATE SODIUM
     Dosage: 10 MG, UNKNOWN
     Route: 048
     Dates: start: 20001102, end: 20070920
  2. FOSAMAX [Suspect]
     Active Substance: ALENDRONATE SODIUM
     Indication: OSTEOPOROSIS
     Dosage: 70 MG, QW
     Route: 048
     Dates: start: 20000329, end: 20070920
  3. ZOCOR [Concomitant]
     Active Substance: SIMVASTATIN
     Indication: PRODUCT USED FOR UNKNOWN INDICATION
     Dosage: 20 MG, QD
     Route: 048
  4. HYDROCHLOROTHIAZIDE. [Concomitant]
     Active Substance: HYDROCHLOROTHIAZIDE
     Indication: PRODUCT USED FOR UNKNOWN INDICATION
     Dosage: 25 DF, UNKNOWN
     Route: 065
  5. FOSAMAX PLUS D [Suspect]
     Active Substance: ALENDRONATE SODIUM\CHOLECALCIFEROL
     Indication: OSTEOPOROSIS
     Dosage: 70 MG, QW
     Route: 048
     Dates: start: 20051020, end: 200803
  6. INDERAL LA [Concomitant]
     Active Substance: PROPRANOLOL HYDROCHLORIDE
     Indication: PRODUCT USED FOR UNKNOWN INDICATION
     Dosage: 120 DF, UNKNOWN
     Route: 065

REACTIONS (22)
  - Back pain [Unknown]
  - Mitral valve prolapse [Unknown]
  - Foot deformity [Unknown]
  - Ligament sprain [Unknown]
  - Vitamin D deficiency [Unknown]
  - Femur fracture [Unknown]
  - Calcium deficiency [Unknown]
  - Amenorrhoea [Unknown]
  - Musculoskeletal pain [Unknown]
  - Fatigue [Unknown]
  - Femur fracture [Unknown]
  - Fall [Unknown]
  - Arthralgia [Unknown]
  - Balance disorder [Unknown]
  - Spinal disorder [Unknown]
  - Osteoporosis [Unknown]
  - Limb asymmetry [Unknown]
  - Muscle strain [Unknown]
  - Gait disturbance [Unknown]
  - Osteoarthritis [Unknown]
  - Discomfort [Unknown]
  - Arthropathy [Unknown]

NARRATIVE: CASE EVENT DATE: 20001102
